FAERS Safety Report 25381268 (Version 1)
Quarter: 2025Q2

REPORT INFORMATION
  Report Type: Spontaneous
  Country: US (occurrence: US)
  Receive Date: 20250530
  Receipt Date: 20250530
  Transmission Date: 20250716
  Serious: No
  Sender: INCYTE
  Company Number: US-EVENT-002866

PATIENT
  Age: 64 Year

DRUGS (1)
  1. OPZELURA [Suspect]
     Active Substance: RUXOLITINIB PHOSPHATE
     Indication: Lichen planus

REACTIONS (3)
  - Hair disorder [Unknown]
  - Hair texture abnormal [Unknown]
  - Off label use [Unknown]
